FAERS Safety Report 15238912 (Version 4)
Quarter: 2018Q4

REPORT INFORMATION
  Report Type: Spontaneous
  Country: US (occurrence: US)
  Receive Date: 20180803
  Receipt Date: 20181212
  Transmission Date: 20190204
  Serious: No
  Sender: FDA-Public Use
  Company Number: US-ASTRAZENECA-2018SE90292

PATIENT
  Age: 27951 Day
  Sex: Male
  Weight: 92.5 kg

DRUGS (21)
  1. CALQUENCE [Suspect]
     Active Substance: ACALABRUTINIB
     Indication: ASTHMA
     Dosage: 100.0MG UNKNOWN
     Route: 048
     Dates: start: 20180207
  2. ALBUTEROL. [Concomitant]
     Active Substance: ALBUTEROL
     Indication: ASTHMA
     Dosage: 2 PUFFS EVERY FOUR HOURS AS NEEDED
     Route: 055
  3. NASACORT [Concomitant]
     Active Substance: TRIAMCINOLONE ACETONIDE
     Route: 045
  4. HYDRODIURIL [Concomitant]
     Active Substance: HYDROCHLOROTHIAZIDE
     Route: 048
  5. SYMBICORT [Suspect]
     Active Substance: BUDESONIDE\FORMOTEROL FUMARATE DIHYDRATE
     Indication: ASTHMA
     Dosage: UNKNOWN UNKNOWN
     Route: 055
  6. PREDNISONE. [Concomitant]
     Active Substance: PREDNISONE
     Dosage: 50 MG PO FOR 2 DAYS
     Route: 048
  7. CALQUENCE [Suspect]
     Active Substance: ACALABRUTINIB
     Indication: LYMPHOMA
     Dosage: 100.0MG UNKNOWN
     Route: 048
     Dates: start: 20180207
  8. ALBUTEROL. [Concomitant]
     Active Substance: ALBUTEROL
     Indication: INHALATION THERAPY
     Dosage: 2 PUFFS EVERY FOUR HOURS AS NEEDED
     Route: 055
  9. PREDNISONE. [Concomitant]
     Active Substance: PREDNISONE
     Dosage: 40 MG PO FOR 2 DAYS
     Route: 048
  10. PREDNISONE. [Concomitant]
     Active Substance: PREDNISONE
     Dosage: 30 MG PO FOR 2 DAYS
     Route: 048
  11. FISH OIL [Concomitant]
     Active Substance: FISH OIL
     Route: 048
  12. PREDNISONE. [Concomitant]
     Active Substance: PREDNISONE
     Route: 048
  13. PREDNISONE. [Concomitant]
     Active Substance: PREDNISONE
     Dosage: 20 MG PO FOR 2 DAYS
     Route: 048
  14. PREDNISONE. [Concomitant]
     Active Substance: PREDNISONE
     Dosage: 10 MG PO FOR 2 DAYS
     Route: 048
  15. VITAMIN B12 [Concomitant]
     Active Substance: CYANOCOBALAMIN
     Dosage: 1 TABLET UNDER THE TONGUE
     Route: 048
  16. CLARITIN [Concomitant]
     Active Substance: LORATADINE
     Route: 048
  17. SINGULAIR [Concomitant]
     Active Substance: MONTELUKAST SODIUM
     Route: 048
  18. SYMBICORT [Suspect]
     Active Substance: BUDESONIDE\FORMOTEROL FUMARATE DIHYDRATE
     Indication: ASTHMA
     Dosage: 200/6 MCG VIA INH 1-2 PUFFS TWICE DAILY; PRODUCT OBTAINED IN UNITED KINGDOM. UNKNOWN
     Route: 055
     Dates: start: 20180403, end: 201804
  19. PROSCAR [Concomitant]
     Active Substance: FINASTERIDE
     Route: 048
  20. ZOCOR [Concomitant]
     Active Substance: SIMVASTATIN
     Route: 048
  21. ATENOLOL. [Concomitant]
     Active Substance: ATENOLOL
     Route: 048

REACTIONS (9)
  - Fatigue [Unknown]
  - Intentional product misuse [Unknown]
  - Off label use [Unknown]
  - Cough [Unknown]
  - Dyspnoea [Unknown]
  - Ear infection [Unknown]
  - Product use in unapproved indication [Unknown]
  - Asthma [Unknown]
  - Bronchitis bacterial [Unknown]

NARRATIVE: CASE EVENT DATE: 20180402
